FAERS Safety Report 7071796-8 (Version None)
Quarter: 2010Q4

REPORT INFORMATION
  Report Type: 
  Country: None (occurrence: None)
  Receive Date: 20101029
  Receipt Date: 20091022
  Transmission Date: 20110411
  Serious: No
  Sender: FDA-Public Use
  Company Number: A0812999A

PATIENT
  Age: 78 Year
  Sex: Male

DRUGS (7)
  1. ADVAIR DISKUS 100/50 [Suspect]
     Dosage: 1PUFF TWICE PER DAY
     Route: 055
     Dates: start: 20090701
  2. KEPPRA [Concomitant]
  3. SIMVASTATIN [Concomitant]
  4. MULTI-VITAMIN [Concomitant]
  5. ASPIRIN [Concomitant]
  6. MUCINEX [Concomitant]
  7. ALBUTEROL [Concomitant]

REACTIONS (5)
  - DRUG INEFFECTIVE [None]
  - DYSPHONIA [None]
  - EXPIRED DRUG ADMINISTERED [None]
  - ORAL PAIN [None]
  - SECRETION DISCHARGE [None]
